FAERS Safety Report 10038883 (Version 1)
Quarter: 2014Q1

REPORT INFORMATION
  Report Type: Spontaneous
  Country: US (occurrence: US)
  Receive Date: 20140326
  Receipt Date: 20140326
  Transmission Date: 20141002
  Serious: No
  Sender: FDA-Public Use
  Company Number: US-ASTRAZENECA-2013SE60037

PATIENT
  Age: 59 Year
  Sex: Female
  Weight: 102.1 kg

DRUGS (2)
  1. NEXIUM [Suspect]
     Route: 048
     Dates: start: 20130615
  2. HYZAAR [Concomitant]
     Indication: HYPERTENSION
     Dosage: 10-25 DAILY
     Route: 048
     Dates: start: 2003

REACTIONS (2)
  - Vomiting [Unknown]
  - Abdominal discomfort [Unknown]
